FAERS Safety Report 6741015-8 (Version None)
Quarter: 2010Q2

REPORT INFORMATION
  Report Type: 
  Country: None (occurrence: None)
  Receive Date: 20100526
  Receipt Date: 20100517
  Transmission Date: 20101027
  Serious: Yes (Other)
  Sender: FDA-Public Use
  Company Number: US-ASTRAZENECA-2007UW11832

PATIENT
  Sex: Male

DRUGS (8)
  1. SEROQUEL [Suspect]
     Route: 048
     Dates: start: 20080101
  2. DEPAKOTE ER [Concomitant]
     Dates: start: 20071129
  3. NABUMETONE [Concomitant]
     Dates: start: 20071129
  4. RISPERDAL [Concomitant]
     Dates: start: 20071202
  5. ABILIFY [Concomitant]
     Dosage: 5 MG TO 10 MG
     Dates: start: 20071202
  6. PROPRANOLOL [Concomitant]
     Dosage: 20 MG TO 40 MG
     Dates: start: 20071213
  7. LORAZEPAM [Concomitant]
     Dosage: 0.5 MG TO 1 MG
     Dates: start: 20071213
  8. ZOLPIDEM [Concomitant]
     Dates: start: 20080118

REACTIONS (3)
  - DIABETES MELLITUS [None]
  - DIABETIC NEPHROPATHY [None]
  - TYPE 2 DIABETES MELLITUS [None]
